FAERS Safety Report 23594032 (Version 1)
Quarter: 2024Q1

REPORT INFORMATION
  Report Type: Spontaneous
  Country: IT (occurrence: IT)
  Receive Date: 20240305
  Receipt Date: 20240305
  Transmission Date: 20240410
  Serious: Yes (Hospitalization, Disabling, Other)
  Sender: FDA-Public Use
  Company Number: None

PATIENT
  Age: 86 Year
  Sex: Female

DRUGS (2)
  1. BEMPEDOIC ACID [Suspect]
     Active Substance: BEMPEDOIC ACID
     Indication: Dyslipidaemia
     Dosage: 180 MG, QD
     Route: 048
     Dates: start: 202312, end: 202312
  2. ATORVASTATIN\EZETIMIBE [Suspect]
     Active Substance: ATORVASTATIN\EZETIMIBE
     Indication: Dyslipidaemia
     Dosage: 80+10 MG, QD (80 MG + 10 MG, TAKEN 1 TIME PER DAY)
     Route: 048
     Dates: start: 2022, end: 202312

REACTIONS (1)
  - Rhabdomyolysis [Recovering/Resolving]

NARRATIVE: CASE EVENT DATE: 20231201
